FAERS Safety Report 5321658-9 (Version None)
Quarter: 2007Q2

REPORT INFORMATION
  Report Type: 
  Country: None (occurrence: None)
  Receive Date: 20070220
  Receipt Date: 20070102
  Transmission Date: 20071010
  Serious: No
  Sender: FDA-Public Use
  Company Number: TPA2006A02223

PATIENT
  Age: 62 Year
  Sex: Male
  Weight: 70.3075 kg

DRUGS (9)
  1. ROZEREM [Suspect]
     Indication: INSOMNIA
     Dosage: 8 MG, HS, PER ORAL
     Route: 048
     Dates: end: 20061205
  2. ZOCOR [Concomitant]
  3. ATENOLOL [Concomitant]
  4. UNKNOWN ACE INHIBITOR(ACE INHIBITOR NOS) [Concomitant]
  5. UNKNOWN DIURETIC (DIURETICS) [Concomitant]
  6. TRAZODONE HCL [Concomitant]
  7. CYMBALTA [Concomitant]
  8. ADDERALL (DEXAMFETAMINE SULFATE, AMFETAMINE SULFATE, DEXAMFETAMINE SAC [Concomitant]
  9. FLEXERIL [Concomitant]

REACTIONS (3)
  - DRUG INEFFECTIVE [None]
  - INITIAL INSOMNIA [None]
  - PHYSICAL EXAMINATION NORMAL [None]
